FAERS Safety Report 18039573 (Version 1)
Quarter: 2020Q3

REPORT INFORMATION
  Report Type: Report from Study
  Country: MX (occurrence: MX)
  Receive Date: 20200717
  Receipt Date: 20200717
  Transmission Date: 20201103
  Serious: Yes (Other)
  Sender: FDA-Public Use
  Company Number: NVSC2020MX199501

PATIENT
  Sex: Female
  Weight: 72 kg

DRUGS (1)
  1. EXFORGE HCT [Suspect]
     Active Substance: AMLODIPINE BESYLATE\HYDROCHLOROTHIAZIDE\VALSARTAN
     Indication: THROMBOSIS
     Dosage: 1 DF, BID (START DATE ONE MONTH AGO APPROX AND END DATE 20 DAYS AGO APPROX)
     Route: 048

REACTIONS (4)
  - Facial paralysis [Unknown]
  - Condition aggravated [Unknown]
  - Product use in unapproved indication [Unknown]
  - Off label use [Unknown]
